FAERS Safety Report 10841605 (Version 1)
Quarter: 2015Q1

REPORT INFORMATION
  Report Type: Spontaneous
  Country: US (occurrence: US)
  Receive Date: 20150220
  Receipt Date: 20150220
  Transmission Date: 20150721
  Serious: No
  Sender: FDA-Public Use
  Company Number: US-DRREDDYS-USA/USA/14/0044862

PATIENT
  Age: 53 Year
  Sex: Female

DRUGS (1)
  1. SUMATRIPTAN INJECTION USP, 6 MG/0.5 ML [Suspect]
     Active Substance: SUMATRIPTAN
     Indication: MIGRAINE
     Dosage: INJECT 6 MG, MAY REPEAT IN ONE HOUR
     Route: 065

REACTIONS (3)
  - Headache [Unknown]
  - Drug dose omission [Unknown]
  - Product quality issue [Unknown]
